FAERS Safety Report 7378094-3 (Version None)
Quarter: 2011Q1

REPORT INFORMATION
  Report Type: 
  Country: None (occurrence: None)
  Receive Date: 20110317
  Receipt Date: 20110308
  Transmission Date: 20110831
  Serious: Yes (Other)
  Sender: FDA-Public Use
  Company Number: DSA_45156_2011

PATIENT
  Sex: Female

DRUGS (5)
  1. XENAZINE [Suspect]
     Indication: TARDIVE DYSKINESIA
     Dosage: (DF ORAL)
     Route: 048
     Dates: end: 20110307
  2. AMBIEN [Concomitant]
  3. ATIVAN [Concomitant]
  4. LISINOPRIL [Concomitant]
  5. DILTIAZEM [Concomitant]

REACTIONS (8)
  - TREMOR [None]
  - BLOOD PRESSURE ABNORMAL [None]
  - AGITATION [None]
  - EXOPHTHALMOS [None]
  - TONGUE DISORDER [None]
  - FEELING COLD [None]
  - DRY MOUTH [None]
  - TRISMUS [None]
